FAERS Safety Report 4448371-4 (Version None)
Quarter: 2004Q3

REPORT INFORMATION
  Report Type: 
  Country: None (occurrence: None)
  Receive Date: 20040910
  Receipt Date: 20040910
  Transmission Date: 20050211
  Serious: No
  Sender: FDA-Public Use
  Company Number: None

PATIENT
  Age: 74 Year
  Sex: Female
  Weight: 66.7 kg

DRUGS (1)
  1. FOSINOPRIL SODIUM [Suspect]

REACTIONS (1)
  - COUGH [None]
